FAERS Safety Report 8114315-7 (Version None)
Quarter: 2012Q1

REPORT INFORMATION
  Report Type: 
  Country: None (occurrence: None)
  Receive Date: 20120206
  Receipt Date: 20120126
  Transmission Date: 20120608
  Serious: No
  Sender: FDA-Public Use
  Company Number: US-BIOGENIDEC-2010BI006731

PATIENT
  Sex: Female

DRUGS (1)
  1. TYSABRI [Suspect]
     Indication: MULTIPLE SCLEROSIS
     Route: 042
     Dates: start: 20080903

REACTIONS (5)
  - PAIN IN EXTREMITY [None]
  - GAIT DISTURBANCE [None]
  - BACK PAIN [None]
  - ARTHRITIS [None]
  - MUSCULOSKELETAL DISORDER [None]
